FAERS Safety Report 5583214-7 (Version None)
Quarter: 2008Q1

REPORT INFORMATION
  Report Type: 
  Country: None (occurrence: None)
  Receive Date: 20080103
  Receipt Date: 20080103
  Transmission Date: 20080703
  Serious: No
  Sender: FDA-Public Use
  Company Number: None

PATIENT
  Sex: Female
  Weight: 79.3795 kg

DRUGS (4)
  1. CHANTIX [Suspect]
     Indication: SMOKING CESSATION THERAPY
     Dosage: 1MG  2XDAY  PO
     Route: 048
     Dates: start: 20070806, end: 20071029
  2. CHANTIX [Suspect]
     Indication: ANGER
     Dosage: 1MG  XDAY  PO
     Route: 048
     Dates: start: 20071220, end: 20071230
  3. CHANTIX [Suspect]
     Indication: ANXIETY
     Dosage: 1MG  XDAY  PO
     Route: 048
     Dates: start: 20071220, end: 20071230
  4. CHANTIX [Suspect]
     Indication: HEADACHE
     Dosage: 1MG  XDAY  PO
     Route: 048
     Dates: start: 20071220, end: 20071230

REACTIONS (3)
  - ANGER [None]
  - ANXIETY [None]
  - HEADACHE [None]
